FAERS Safety Report 14456525 (Version 3)
Quarter: 2018Q3

REPORT INFORMATION
  Report Type: Other
  Country: CA (occurrence: CA)
  Receive Date: 20180130
  Receipt Date: 20180806
  Transmission Date: 20181010
  Serious: Yes (Other)
  Sender: FDA-Public Use
  Company Number: CA-APOTEX-2018AP005549

PATIENT
  Age: 41 Year
  Sex: Female

DRUGS (2)
  1. PREDNISONE. [Suspect]
     Active Substance: PREDNISONE
     Indication: PRODUCT USED FOR UNKNOWN INDICATION
     Route: 065
  2. SALBUTAMOL [Suspect]
     Active Substance: ALBUTEROL
     Indication: PRODUCT USED FOR UNKNOWN INDICATION
     Route: 065

REACTIONS (14)
  - Blood iron decreased [Unknown]
  - Coeliac disease [Unknown]
  - Tooth infection [Unknown]
  - Stenosis [Unknown]
  - Toothache [Unknown]
  - Pulpitis dental [Unknown]
  - Tooth disorder [Unknown]
  - Immunodeficiency [Unknown]
  - Bursitis [Unknown]
  - Fibromyalgia [Unknown]
  - Lung disorder [Unknown]
  - Ankle operation [Unknown]
  - Pain [Unknown]
  - Tendon rupture [Unknown]
